FAERS Safety Report 9497683 (Version 1)
Quarter: 2013Q3

REPORT INFORMATION
  Report Type: Spontaneous
  Country: IT (occurrence: None)
  Receive Date: 20130830
  Receipt Date: 20130830
  Transmission Date: 20140515
  Serious: Yes (Hospitalization)
  Sender: FDA-Public Use
  Company Number: 1862660

PATIENT
  Age: 62 Year
  Sex: Male
  Weight: 75 kg

DRUGS (3)
  1. EPIRUBICIN HYDROCHLORIDE [Suspect]
     Indication: GASTRIC CANCER
     Dosage: 97 MG MILLIGRAM(S) (CYCLICAL), INTRAVENOUS (NOT OTHERWISE SPECIFIED)
     Route: 042
     Dates: start: 20120924, end: 20120929
  2. CISPLATINO TEVA [Suspect]
     Indication: GASTRIC CANCER
     Dosage: 116.4 MG MILLIGRAM(S) (CYCLICAL) INTRAVENOUS (NOT OTHEWISE SPECIFIED)
     Route: 042
     Dates: start: 20120924, end: 20120929
  3. XELODA [Suspect]
     Indication: GASTRIC CANCER
     Dosage: 48300 MG MILLIGRAM(S) (CYCLICAL) ORAL
     Route: 048
     Dates: start: 20120924, end: 20120929

REACTIONS (2)
  - Weight decreased [None]
  - Gastrointestinal toxicity [None]
